FAERS Safety Report 12293933 (Version 1)
Quarter: 2016Q2

REPORT INFORMATION
  Report Type: Spontaneous
  Country: US (occurrence: US)
  Receive Date: 20160422
  Receipt Date: 20160422
  Transmission Date: 20160815
  Serious: Yes (Death)
  Sender: FDA-Public Use
  Company Number: US-ROCHE-1746327

PATIENT
  Age: 63 Year
  Sex: Female

DRUGS (16)
  1. VITAMIN C [Concomitant]
     Active Substance: ASCORBIC ACID
  2. FOLIC ACID. [Concomitant]
     Active Substance: FOLIC ACID
  3. VITAMIN K [Concomitant]
     Active Substance: PHYTONADIONE
  4. AMBIEN [Concomitant]
     Active Substance: ZOLPIDEM TARTRATE
  5. TYLENOL [Concomitant]
     Active Substance: ACETAMINOPHEN
  6. TARCEVA [Suspect]
     Active Substance: ERLOTINIB HYDROCHLORIDE
     Indication: BLADDER CANCER
     Dosage: ON AN EMPTY STOMACH-1HR BEFORE OR 2HRS AFTER FOOD
     Route: 048
  7. AVASTIN [Suspect]
     Active Substance: BEVACIZUMAB
     Indication: PRODUCT USED FOR UNKNOWN INDICATION
     Route: 065
  8. ZOFRAN [Concomitant]
     Active Substance: ONDANSETRON HYDROCHLORIDE
  9. COD LIVER OIL [Concomitant]
     Active Substance: COD LIVER OIL
  10. GABAPENTIN. [Concomitant]
     Active Substance: GABAPENTIN
  11. PROMETHAZINE HCL [Concomitant]
     Active Substance: PROMETHAZINE HYDROCHLORIDE
  12. GLUTAMINE [Concomitant]
     Active Substance: GLUTAMINE
  13. LORATADINE. [Concomitant]
     Active Substance: LORATADINE
  14. TRANSDERM SCOP [Concomitant]
     Active Substance: SCOPOLAMINE
  15. MILK THISTLE [Concomitant]
     Active Substance: MILK THISTLE
  16. GLUTATHIONE [Concomitant]
     Active Substance: GLUTATHIONE

REACTIONS (1)
  - Death [Fatal]
